FAERS Safety Report 8134237-5 (Version None)
Quarter: 2012Q1

REPORT INFORMATION
  Report Type: 
  Country: None (occurrence: None)
  Receive Date: 20120201
  Receipt Date: 20120119
  Transmission Date: 20120608
  Serious: Yes (Death, Hospitalization, Other)
  Sender: FDA-Public Use
  Company Number: 2011PROUSA00694

PATIENT
  Age: 68 Year
  Sex: Male
  Weight: 78 kg

DRUGS (9)
  1. PROVENGE [Suspect]
  2. PROVENGE [Suspect]
  3. HEPARIN [Suspect]
  4. NEULASTA (PEGFILGRASTIM) UNK TO 09/20/2011 [Concomitant]
  5. DOCETAXEL [Suspect]
  6. PROVENGE [Suspect]
     Indication: PROSTATE CANCER METASTATIC
     Dosage: 250 ML, SINGLE, INTRAVENOUS
     Route: 042
     Dates: start: 20110513, end: 20110513
  7. PROVENGE [Suspect]
     Indication: PROSTATE CANCER METASTATIC
     Dosage: 250 ML, SINGLE, INTRAVENOUS
     Route: 042
     Dates: start: 20110527, end: 20110527
  8. PROVENGE [Suspect]
     Indication: PROSTATE CANCER METASTATIC
     Dosage: 250 ML, SINGLE, INTRAVENOUS
     Route: 042
     Dates: start: 20110610, end: 20110610
  9. DENOSUMAB (DENOSUMAB) UNK TO 09/19/2011 [Concomitant]

REACTIONS (18)
  - DEEP VEIN THROMBOSIS [None]
  - DEHYDRATION [None]
  - PULMONARY OEDEMA [None]
  - ACUTE RESPIRATORY DISTRESS SYNDROME [None]
  - ATRIAL FLUTTER [None]
  - NAUSEA [None]
  - FALL [None]
  - HYPOTENSION [None]
  - PYREXIA [None]
  - OEDEMA PERIPHERAL [None]
  - HAEMATURIA [None]
  - SYNCOPE [None]
  - ASTHENIA [None]
  - PNEUMONIA [None]
  - DECREASED APPETITE [None]
  - LUNG INFILTRATION [None]
  - LEUKOPENIA [None]
  - LOSS OF CONSCIOUSNESS [None]
